FAERS Safety Report 17208590 (Version 1)
Quarter: 2019Q4

REPORT INFORMATION
  Report Type: Spontaneous
  Country: US (occurrence: US)
  Receive Date: 20191227
  Receipt Date: 20191227
  Transmission Date: 20200122
  Serious: Yes (Other)
  Sender: FDA-Public Use
  Company Number: US-PFIZER INC-2019552410

PATIENT
  Age: 34 Year
  Sex: Female
  Weight: 90.72 kg

DRUGS (1)
  1. PRISTIQ EXTENDED-RELEASE [Suspect]
     Active Substance: DESVENLAFAXINE SUCCINATE
     Indication: DEPRESSION
     Dosage: 50 MG, 2X/DAY(50MG IN THE MORNING AND 50MG IN THE EVENING)
     Route: 048

REACTIONS (2)
  - Seizure [Recovering/Resolving]
  - Off label use [Unknown]
